FAERS Safety Report 25889814 (Version 2)
Quarter: 2025Q4

REPORT INFORMATION
  Report Type: Report from Study
  Country: EU (occurrence: EU)
  Receive Date: 20251007
  Receipt Date: 20251027
  Transmission Date: 20260117
  Serious: Yes (Death, Other)
  Sender: PFIZER
  Company Number: EU-PFIZER INC-202500196783

PATIENT
  Age: 70 Year
  Sex: Male

DRUGS (5)
  1. ISAVUCONAZONIUM SULFATE [Suspect]
     Active Substance: ISAVUCONAZONIUM SULFATE
     Indication: Fungaemia
     Dosage: 200 MG, 2X/DAY X 2 DAYS
  2. ANIDULAFUNGIN [Suspect]
     Active Substance: ANIDULAFUNGIN
     Indication: Fungaemia
     Dosage: 100 MG, DAILY X 3 DAYS
  3. AMPHOTERICIN B [Suspect]
     Active Substance: AMPHOTERICIN B
     Indication: Fungaemia
     Dosage: 5 MG, DAILY
  4. AMPHOTERICIN B [Suspect]
     Active Substance: AMPHOTERICIN B
     Dosage: 5 MG, DAILY X 4 DAYS
  5. CASPOFUNGIN [Suspect]
     Active Substance: CASPOFUNGIN
     Indication: Fungaemia
     Dosage: 50 MG, DAILY X 7 DAYS

REACTIONS (1)
  - Drug ineffective [Fatal]
